FAERS Safety Report 7984023-1 (Version None)
Quarter: 2011Q4

REPORT INFORMATION
  Report Type: 
  Country: None (occurrence: None)
  Receive Date: 20111216
  Receipt Date: 20111208
  Transmission Date: 20120403
  Serious: Yes (Death, Hospitalization)
  Sender: FDA-Public Use
  Company Number: DK-PFIZER INC-DK-WYE-H15830810

PATIENT
  Age: 48 Year
  Sex: Female

DRUGS (4)
  1. CORDARONE [Suspect]
     Dosage: 400 MG ONCE DAILY
     Route: 048
     Dates: start: 20091119
  2. CORDARONE [Suspect]
     Indication: ATRIAL FIBRILLATION
     Dosage: 400 MG, 2X/DAY
     Route: 048
     Dates: start: 20091104, end: 20091118
  3. METOPROLOL [Concomitant]
     Dosage: UNK
     Route: 065
  4. WARFARIN [Concomitant]
     Dosage: UNK
     Route: 065

REACTIONS (4)
  - PALPITATIONS [None]
  - TOXICITY TO VARIOUS AGENTS [None]
  - ABDOMINAL DISCOMFORT [None]
  - HEART RATE IRREGULAR [None]
